FAERS Safety Report 6108495-2 (Version None)
Quarter: 2009Q1

REPORT INFORMATION
  Report Type: 
  Country: None (occurrence: None)
  Receive Date: 20090309
  Receipt Date: 20090228
  Transmission Date: 20090719
  Serious: Yes (Other)
  Sender: FDA-Public Use
  Company Number: US-B.I. PHARMACEUTICALS,INC./RIDGEFIELD-2009-BP-02502BP

PATIENT
  Sex: Male
  Weight: 71 kg

DRUGS (7)
  1. SPIRIVA [Suspect]
     Indication: PNEUMONIA
     Dosage: 18MCG
     Route: 055
  2. ADVAIR HFA [Suspect]
     Indication: PNEUMONIA
     Route: 055
  3. NADOLOL [Concomitant]
  4. LACTULOSE [Concomitant]
     Indication: AMMONIA INCREASED
  5. LASIX [Concomitant]
     Indication: OEDEMA
  6. FOLIC ACID [Concomitant]
     Indication: VITAMIN SUPPLEMENTATION
  7. LEVOCARNITINE [Concomitant]
     Indication: CARNITINE

REACTIONS (3)
  - DRY MOUTH [None]
  - DYSPHAGIA [None]
  - DYSPNOEA [None]
